FAERS Safety Report 13532792 (Version 2)
Quarter: 2017Q2

REPORT INFORMATION
  Report Type: Spontaneous
  Country: ID (occurrence: ID)
  Receive Date: 20170510
  Receipt Date: 20170530
  Transmission Date: 20170830
  Serious: Yes (Other)
  Sender: FDA-Public Use
  Company Number: ID-JNJFOC-20170504215

PATIENT
  Age: 81 Year
  Sex: Male

DRUGS (8)
  1. PREDNISON [Suspect]
     Active Substance: PREDNISONE
     Indication: HORMONE-REFRACTORY PROSTATE CANCER
     Route: 065
     Dates: start: 20150824, end: 20160915
  2. AVODART [Concomitant]
     Active Substance: DUTASTERIDE
     Route: 065
     Dates: start: 20150824
  3. ZYTIGA [Suspect]
     Active Substance: ABIRATERONE ACETATE
     Indication: HORMONE-REFRACTORY PROSTATE CANCER
     Route: 048
     Dates: start: 20160222, end: 20160915
  4. VESICARE [Concomitant]
     Active Substance: SOLIFENACIN SUCCINATE
     Route: 065
     Dates: start: 20160222
  5. PREDNISON [Suspect]
     Active Substance: PREDNISONE
     Indication: HORMONE-REFRACTORY PROSTATE CANCER
     Route: 065
     Dates: start: 20141112, end: 20150317
  6. HARNAL [Concomitant]
     Active Substance: TAMSULOSIN HYDROCHLORIDE
     Route: 065
     Dates: start: 20151125
  7. ZYTIGA [Suspect]
     Active Substance: ABIRATERONE ACETATE
     Indication: HORMONE-REFRACTORY PROSTATE CANCER
     Route: 048
     Dates: start: 201303, end: 201507
  8. ZYTIGA [Suspect]
     Active Substance: ABIRATERONE ACETATE
     Indication: HORMONE-REFRACTORY PROSTATE CANCER
     Route: 048
     Dates: start: 201510, end: 201512

REACTIONS (15)
  - Oesophageal candidiasis [Unknown]
  - Pyrexia [Recovered/Resolved]
  - Gastritis erosive [Unknown]
  - Paraesthesia [Recovered/Resolved]
  - Cushingoid [Recovered/Resolved]
  - Hypophagia [Unknown]
  - Blood lactate dehydrogenase increased [Unknown]
  - Hydronephrosis [Unknown]
  - Somnolence [Unknown]
  - Oedema [Unknown]
  - Blood glucose increased [Recovered/Resolved]
  - Cataract [Unknown]
  - Groin pain [Recovered/Resolved]
  - Peripheral swelling [Recovered/Resolved]
  - Local swelling [Unknown]

NARRATIVE: CASE EVENT DATE: 20141112
